FAERS Safety Report 7940749-7 (Version None)
Quarter: 2011Q4

REPORT INFORMATION
  Report Type: 
  Country: None (occurrence: None)
  Receive Date: 20111128
  Receipt Date: 20111121
  Transmission Date: 20120403
  Serious: Yes (Death, Other)
  Sender: FDA-Public Use
  Company Number: JP-JNJFOC-20111109955

PATIENT

DRUGS (1)
  1. GALANTAMINE HYDROBROMIDE [Suspect]
     Indication: DEMENTIA
     Route: 048
     Dates: start: 20111101, end: 20111101

REACTIONS (3)
  - PNEUMONIA ASPIRATION [None]
  - VOMITING [None]
  - DECREASED APPETITE [None]
